FAERS Safety Report 11849697 (Version 2)
Quarter: 2016Q1

REPORT INFORMATION
  Report Type: Spontaneous
  Country: GB (occurrence: GB)
  Receive Date: 20151218
  Receipt Date: 20160104
  Transmission Date: 20160526
  Serious: Yes (Other)
  Sender: FDA-Public Use
  Company Number: GB-TEVA-616862ACC

PATIENT
  Sex: Female

DRUGS (3)
  1. FENTANYL CITRATE. [Suspect]
     Active Substance: FENTANYL CITRATE
     Indication: BREAKTHROUGH PAIN
     Dosage: DOSAGE FORM: SOLUTION
     Route: 058
  2. FENTANYL. [Suspect]
     Active Substance: FENTANYL
     Indication: BREAKTHROUGH PAIN
     Route: 058
  3. SUBLIMAZE [Suspect]
     Active Substance: FENTANYL CITRATE
     Indication: BREAKTHROUGH PAIN
     Dosage: DOSAGE FORM: SOLUTION
     Route: 058

REACTIONS (5)
  - Cardiac arrest [Unknown]
  - Product quality issue [Unknown]
  - Therapeutic response decreased [Unknown]
  - Off label use [Unknown]
  - Incorrect route of drug administration [Unknown]
